FAERS Safety Report 5259358-6 (Version None)
Quarter: 2007Q1

REPORT INFORMATION
  Report Type: 
  Country: None (occurrence: None)
  Receive Date: 20070305
  Receipt Date: 20070222
  Transmission Date: 20070707
  Serious: Yes (Hospitalization)
  Sender: FDA-Public Use
  Company Number: GXKR2007TR01937

PATIENT
  Age: 15 Year
  Sex: Female

DRUGS (1)
  1. CEFPROZIL [Suspect]
     Indication: PHARYNGITIS
     Dosage: 1 G, QD

REACTIONS (1)
  - HEPATITIS [None]
